FAERS Safety Report 5069657-9 (Version None)
Quarter: 2006Q3

REPORT INFORMATION
  Report Type: 
  Country: None (occurrence: None)
  Receive Date: 20060803
  Receipt Date: 20060619
  Transmission Date: 20061208
  Serious: Yes (Other)
  Sender: FDA-Public Use
  Company Number: 2006UW13304

PATIENT
  Age: 75 Year
  Sex: Female

DRUGS (4)
  1. SEROQUEL [Suspect]
     Route: 048
  2. VALPROIC ACID [Interacting]
  3. VALPROIC ACID [Interacting]
     Dosage: INCREASED DOSE
     Dates: start: 20060601
  4. RISPERDAL [Concomitant]

REACTIONS (6)
  - CONDITION AGGRAVATED [None]
  - COORDINATION ABNORMAL [None]
  - DRUG INTERACTION [None]
  - FALL [None]
  - GAIT DISTURBANCE [None]
  - TREATMENT NONCOMPLIANCE [None]
